FAERS Safety Report 25610929 (Version 1)
Quarter: 2025Q3

REPORT INFORMATION
  Report Type: Spontaneous
  Country: US (occurrence: None)
  Receive Date: 20250725
  Receipt Date: 20250725
  Transmission Date: 20251020
  Serious: Yes (Hospitalization)
  Sender: FDA-CTU
  Company Number: None

PATIENT
  Age: 68 Year
  Sex: Male

DRUGS (1)
  1. DUPIXENT [Suspect]
     Active Substance: DUPILUMAB
     Indication: Urticaria
     Dosage: FREQUENCY : EVERY OTHER WEEK;?
     Route: 058
     Dates: start: 20250720, end: 20250725

REACTIONS (9)
  - Dizziness [None]
  - Asthenia [None]
  - Fatigue [None]
  - Feeling abnormal [None]
  - Near death experience [None]
  - Blood pressure increased [None]
  - Arthritis [None]
  - Abdominal discomfort [None]
  - Sleep disorder [None]

NARRATIVE: CASE EVENT DATE: 20250722
